FAERS Safety Report 17974159 (Version 1)
Quarter: 2020Q3

REPORT INFORMATION
  Report Type: Spontaneous
  Country: US (occurrence: US)
  Receive Date: 20200702
  Receipt Date: 20200702
  Transmission Date: 20201103
  Serious: Yes (Other)
  Sender: FDA-Public Use
  Company Number: US-AMNEAL PHARMACEUTICALS-2020-AMRX-01195

PATIENT
  Sex: Female
  Weight: 7 kg

DRUGS (2)
  1. VIGABATRIN. [Suspect]
     Active Substance: VIGABATRIN
     Dosage: 1500 MILLIGRAM, DAILY (500 MG IN MORNING AND 1000MG IN NIGHT)
     Route: 048
     Dates: start: 20200405
  2. VIGABATRIN. [Suspect]
     Active Substance: VIGABATRIN
     Indication: INFANTILE SPASMS
     Dosage: 500 MILLIGRAM, BID
     Route: 048
     Dates: end: 20200404

REACTIONS (1)
  - Condition aggravated [Not Recovered/Not Resolved]
